FAERS Safety Report 7224592-2 (Version None)
Quarter: 2011Q1

REPORT INFORMATION
  Report Type: 
  Country: None (occurrence: None)
  Receive Date: 20110113
  Receipt Date: 20110105
  Transmission Date: 20110831
  Serious: Yes (Life-Threatening, Hospitalization, Other)
  Sender: FDA-Public Use
  Company Number: US-PFIZER INC-US-WYE-H18436610

PATIENT
  Sex: Female
  Weight: 68.1 kg

DRUGS (18)
  1. SYMBICORT [Concomitant]
     Dosage: 2 PUFF 2X/DAY
     Route: 055
  2. PLAVIX [Concomitant]
     Indication: MYOCARDIAL INFARCTION
     Dosage: 75 MG, 1X/DAY
     Dates: start: 20100910
  3. CITALOPRAM [Concomitant]
     Indication: ANTIDEPRESSANT THERAPY
  4. PRISTIQ [Suspect]
     Indication: DEPRESSION
     Dosage: 50 MG, 1X/DAY
     Route: 048
     Dates: start: 20100801, end: 20100901
  5. LORTAB [Suspect]
     Dosage: UNK
  6. PRISTIQ [Suspect]
     Dosage: 100 MG, 1X/DAY
     Dates: start: 20100901, end: 20101005
  7. SYNTHROID [Concomitant]
     Indication: BLOOD IRON DECREASED
     Dosage: 0.075 MG, 1X/DAY
  8. MULTI-VITAMINS [Concomitant]
     Dosage: DAILY
  9. DESYREL [Concomitant]
     Indication: SLEEP DISORDER
     Dosage: 50 UNK, UNK
  10. LAMOTRIGINE [Concomitant]
     Indication: ANTIDEPRESSANT THERAPY
  11. XANAX [Suspect]
     Indication: ANXIETY
     Dosage: .25 MG, 3X/DAY
     Route: 048
     Dates: start: 20101006, end: 20101006
  12. VITAMIN B-12 [Concomitant]
     Dosage: UNK
     Route: 030
  13. LISINOPRIL [Concomitant]
     Indication: MYOCARDIAL INFARCTION
     Dosage: 2.5 MG, 1X/DAY
  14. TYLENOL W/ CODEINE NO. 3 [Concomitant]
  15. CRESTOR [Concomitant]
     Indication: BLOOD CHOLESTEROL INCREASED
     Dosage: 20 MG, 1X/DAY
  16. CALCIUM [Concomitant]
     Indication: BLOOD CALCIUM DECREASED
     Dosage: 1200 MG, 1X/DAY
  17. IBANDRONATE SODIUM [Concomitant]
     Indication: BONE DISORDER
     Dosage: 150 MG, MONTHLY
  18. ASPIRIN [Concomitant]
     Indication: MYOCARDIAL INFARCTION
     Dosage: 81 MG, 1X/DAY
     Dates: start: 20100910

REACTIONS (20)
  - SUICIDE ATTEMPT [None]
  - HEART RATE INCREASED [None]
  - PANIC ATTACK [None]
  - ACTIVITIES OF DAILY LIVING IMPAIRED [None]
  - DYSPNOEA [None]
  - FEELING ABNORMAL [None]
  - BLOOD POTASSIUM DECREASED [None]
  - THINKING ABNORMAL [None]
  - SUICIDAL IDEATION [None]
  - INTENTIONAL OVERDOSE [None]
  - MAJOR DEPRESSION [None]
  - DRUG INEFFECTIVE [None]
  - LOSS OF CONSCIOUSNESS [None]
  - CONDITION AGGRAVATED [None]
  - ANXIETY [None]
  - SOMNOLENCE [None]
  - ANTISOCIAL BEHAVIOUR [None]
  - ANGER [None]
  - DEHYDRATION [None]
  - MEMORY IMPAIRMENT [None]
